FAERS Safety Report 5312576-0 (Version None)
Quarter: 2007Q2

REPORT INFORMATION
  Report Type: 
  Country: None (occurrence: None)
  Receive Date: 20070430
  Receipt Date: 20070123
  Transmission Date: 20071010
  Serious: No
  Sender: FDA-Public Use
  Company Number: 2007UW01383

PATIENT
  Age: 39 Year
  Sex: Female
  Weight: 65.8 kg

DRUGS (2)
  1. NEXIUM [Suspect]
     Indication: DYSPEPSIA
     Route: 048
     Dates: start: 20061201
  2. ASPIRIN [Concomitant]

REACTIONS (2)
  - CONSTIPATION [None]
  - SENSATION OF FOREIGN BODY [None]
